FAERS Safety Report 4478898-0 (Version None)
Quarter: 2004Q4

REPORT INFORMATION
  Report Type: 
  Country: None (occurrence: None)
  Receive Date: 20041014
  Receipt Date: 20040929
  Transmission Date: 20050328
  Serious: Yes (Other)
  Sender: FDA-Public Use
  Company Number: 2004-DE-01366GD

PATIENT

DRUGS (2)
  1. NEVIRAPINE (NEVIRAPINE) (NR) [Suspect]
     Indication: VERTICAL INFECTION TRANSMISSION
     Dosage: 2 MG/KG (NR) PO
     Route: 048
  2. ZIDOVUDINE [Suspect]
     Indication: VERTICAL INFECTION TRANSMISSION
     Dosage: 2 MG/KG (NR) PO
     Route: 048

REACTIONS (2)
  - DRUG EXPOSURE DURING PREGNANCY [None]
  - VERTICAL INFECTION TRANSMISSION [None]
